FAERS Safety Report 13679313 (Version 1)
Quarter: 2017Q2

REPORT INFORMATION
  Report Type: Spontaneous
  Country: TR (occurrence: TR)
  Receive Date: 20170622
  Receipt Date: 20170622
  Transmission Date: 20170830
  Serious: Yes (Other)
  Sender: FDA-Public Use
  Company Number: TR-BAYER-2016-190816

PATIENT
  Age: 24 Year
  Sex: Female

DRUGS (1)
  1. YAZZ 24+4 [Suspect]
     Active Substance: DROSPIRENONE\ETHINYL ESTRADIOL
     Indication: CONTRACEPTION
     Dosage: UNK UNK, QD
     Route: 048
     Dates: start: 201507, end: 2016

REACTIONS (5)
  - Drug ineffective [None]
  - Abnormal labour [None]
  - Pregnancy on oral contraceptive [Not Recovered/Not Resolved]
  - Complication of delivery [None]
  - Weight increased [None]

NARRATIVE: CASE EVENT DATE: 201609
